FAERS Safety Report 25171547 (Version 1)
Quarter: 2025Q2

REPORT INFORMATION
  Report Type: Spontaneous
  Country: ES (occurrence: ES)
  Receive Date: 20250408
  Receipt Date: 20250408
  Transmission Date: 20250716
  Serious: Yes (Other)
  Sender: STRIDES
  Company Number: ES-STRIDES ARCOLAB LIMITED-2025SP004404

PATIENT

DRUGS (22)
  1. ETOPOSIDE [Suspect]
     Active Substance: ETOPOSIDE
     Indication: Diffuse large B-cell lymphoma stage IV
     Route: 065
     Dates: start: 201901, end: 2019
  2. ETOPOSIDE [Suspect]
     Active Substance: ETOPOSIDE
     Route: 065
     Dates: start: 201902, end: 2019
  3. PREDNISOLONE [Suspect]
     Active Substance: PREDNISOLONE
     Indication: Diffuse large B-cell lymphoma stage IV
     Route: 065
     Dates: start: 201901, end: 2019
  4. PREDNISOLONE [Suspect]
     Active Substance: PREDNISOLONE
     Route: 065
     Dates: start: 201902, end: 2019
  5. PREDNISOLONE [Suspect]
     Active Substance: PREDNISOLONE
     Route: 065
     Dates: start: 2019, end: 2019
  6. PREDNISOLONE [Suspect]
     Active Substance: PREDNISOLONE
     Route: 065
     Dates: start: 201905, end: 2019
  7. RITUXIMAB [Suspect]
     Active Substance: RITUXIMAB
     Indication: Diffuse large B-cell lymphoma stage IV
     Route: 065
     Dates: start: 201901, end: 2019
  8. RITUXIMAB [Suspect]
     Active Substance: RITUXIMAB
     Route: 065
     Dates: start: 201902, end: 2019
  9. RITUXIMAB [Suspect]
     Active Substance: RITUXIMAB
     Route: 065
     Dates: start: 2019, end: 2019
  10. RITUXIMAB [Suspect]
     Active Substance: RITUXIMAB
     Route: 065
     Dates: start: 201905, end: 2019
  11. RITUXIMAB [Suspect]
     Active Substance: RITUXIMAB
     Route: 065
     Dates: start: 2019
  12. CYTARABINE [Suspect]
     Active Substance: CYTARABINE
     Indication: Diffuse large B-cell lymphoma stage IV
     Route: 065
     Dates: start: 201901, end: 2019
  13. CYTARABINE [Suspect]
     Active Substance: CYTARABINE
     Route: 065
     Dates: start: 201902, end: 2019
  14. CISPLATIN [Suspect]
     Active Substance: CISPLATIN
     Indication: Diffuse large B-cell lymphoma stage IV
     Route: 065
     Dates: start: 201901, end: 2019
  15. CISPLATIN [Suspect]
     Active Substance: CISPLATIN
     Route: 065
     Dates: start: 201902, end: 2019
  16. IFOSFAMIDE [Suspect]
     Active Substance: IFOSFAMIDE
     Indication: Diffuse large B-cell lymphoma stage IV
     Route: 065
     Dates: start: 2019, end: 2019
  17. IFOSFAMIDE [Suspect]
     Active Substance: IFOSFAMIDE
     Route: 065
     Dates: start: 201905, end: 2019
  18. GEMCITABINE [Suspect]
     Active Substance: GEMCITABINE
     Indication: Diffuse large B-cell lymphoma stage IV
     Route: 065
     Dates: start: 2019, end: 2019
  19. GEMCITABINE [Suspect]
     Active Substance: GEMCITABINE
     Route: 065
     Dates: start: 201905, end: 2019
  20. GEMCITABINE [Suspect]
     Active Substance: GEMCITABINE
     Route: 065
     Dates: start: 2019
  21. VINORELBINE [Suspect]
     Active Substance: VINORELBINE TARTRATE
     Indication: Diffuse large B-cell lymphoma stage IV
     Route: 065
     Dates: start: 2019, end: 2019
  22. VINORELBINE [Suspect]
     Active Substance: VINORELBINE TARTRATE
     Route: 065
     Dates: start: 201905, end: 2019

REACTIONS (3)
  - Disease progression [Unknown]
  - Drug ineffective for unapproved indication [Unknown]
  - Drug ineffective [Unknown]

NARRATIVE: CASE EVENT DATE: 20190101
